FAERS Safety Report 17481361 (Version 3)
Quarter: 2020Q2

REPORT INFORMATION
  Report Type: Spontaneous
  Country: CA (occurrence: CA)
  Receive Date: 20200302
  Receipt Date: 20200418
  Transmission Date: 20200713
  Serious: No
  Sender: FDA-Public Use
  Company Number: CA-CELLTRION INC.-2020CA019647

PATIENT

DRUGS (7)
  1. BACTRIM [Concomitant]
     Active Substance: SULFAMETHOXAZOLE\TRIMETHOPRIM
     Dosage: UNK
     Route: 065
  2. SOLU-MEDROL [Concomitant]
     Active Substance: METHYLPREDNISOLONE SODIUM SUCCINATE
     Dosage: UNK
     Route: 042
     Dates: start: 202002
  3. INFLECTRA [Suspect]
     Active Substance: INFLIXIMAB-DYYB
     Dosage: 10 MG/KG, 0, 2, 6 WEEKS, THEN EVERY 8 WEEKS
     Route: 042
     Dates: start: 20200409
  4. INFLECTRA [Suspect]
     Active Substance: INFLIXIMAB-DYYB
     Dosage: 10 MG/KG, 0, 2, 6 WEEKS, THEN EVERY 8 WEEKS
     Route: 042
     Dates: start: 20200304
  5. AZATHIOPRINE. [Concomitant]
     Active Substance: AZATHIOPRINE
     Dosage: UNK
     Route: 065
     Dates: start: 2014
  6. INFLECTRA [Suspect]
     Active Substance: INFLIXIMAB-DYYB
     Indication: COLITIS ULCERATIVE
     Dosage: 10 MG/KG, 0, 2, 6 WEEKS, THEN EVERY 8 WEEKS
     Route: 042
     Dates: start: 20200213
  7. CORTISONE [Concomitant]
     Active Substance: CORTISONE
     Dosage: UNK
     Route: 065

REACTIONS (3)
  - Off label use [Unknown]
  - Inappropriate schedule of product administration [Unknown]
  - Asthenia [Unknown]

NARRATIVE: CASE EVENT DATE: 20200213
